FAERS Safety Report 14319320 (Version 2)
Quarter: 2018Q1

REPORT INFORMATION
  Report Type: Report from Study
  Country: FR (occurrence: FR)
  Receive Date: 20171222
  Receipt Date: 20180301
  Transmission Date: 20180509
  Serious: Yes (Hospitalization, Other)
  Sender: FDA-Public Use
  Company Number: FR-PFIZER INC-2017543597

PATIENT
  Age: 4 Year
  Sex: Female

DRUGS (18)
  1. DEXAMETHASONE. [Suspect]
     Active Substance: DEXAMETHASONE
     Dosage: 22.5 MG, 1X/DAY
     Dates: start: 20170921, end: 20170925
  2. BACTRIM [Concomitant]
     Active Substance: SULFAMETHOXAZOLE\TRIMETHOPRIM
     Indication: HYPERBILIRUBINAEMIA
  3. DECTANCYL [Concomitant]
     Active Substance: DEXAMETHASONE
     Indication: HYPERBILIRUBINAEMIA
  4. INEXIUM /01479302/ [Concomitant]
     Active Substance: ESOMEPRAZOLE MAGNESIUM
     Indication: HYPERBILIRUBINAEMIA
  5. FUNGIZONE [Concomitant]
     Active Substance: AMPHOTERICIN B
     Indication: HYPERBILIRUBINAEMIA
  6. METHOTREXATE. [Suspect]
     Active Substance: METHOTREXATE
     Indication: ACUTE LYMPHOCYTIC LEUKAEMIA
     Dosage: 12 MG, UNK: (D2, D30, D58)
     Route: 037
     Dates: start: 20170728, end: 20170922
  7. PEGASPARGASE [Suspect]
     Active Substance: PEGASPARGASE
     Indication: ACUTE LYMPHOCYTIC LEUKAEMIA
     Dosage: 900 IU, UNK: (D8,D36, D64)
     Route: 042
     Dates: start: 20170803, end: 20170928
  8. VANCOMYCIN [Concomitant]
     Active Substance: VANCOMYCIN
     Indication: HYPERBILIRUBINAEMIA
  9. VINCRISTINE SULFATE. [Suspect]
     Active Substance: VINCRISTINE SULFATE
     Indication: ACUTE LYMPHOCYTIC LEUKAEMIA
     Dosage: 1 MG, 1X/DAY: (D1, D36,D57)
     Route: 042
     Dates: start: 20170727, end: 20170921
  10. DEXAMETHASONE. [Suspect]
     Active Substance: DEXAMETHASONE
     Dosage: 20 MG, 1X/DAY
     Dates: start: 20170824, end: 20170828
  11. CEFTAZIDIME. [Concomitant]
     Active Substance: CEFTAZIDIME
     Indication: HYPERBILIRUBINAEMIA
  12. 6-MERCAPTOPURINE MONOHYDRATE [Suspect]
     Active Substance: MERCAPTOPURINE
     Dosage: 714 MG, 1X/DAY
     Route: 048
     Dates: start: 20170824, end: 20170913
  13. ADRIGYL [Concomitant]
     Indication: HYPERBILIRUBINAEMIA
  14. METHOTREXATE SODIUM. [Suspect]
     Active Substance: METHOTREXATE SODIUM
     Dosage: 17.5 MG, 1X/DAY
     Route: 048
     Dates: start: 20170803, end: 20170914
  15. DEXAMETHASONE. [Suspect]
     Active Substance: DEXAMETHASONE
     Indication: ACUTE LYMPHOCYTIC LEUKAEMIA
     Dosage: 22.5 MG, 1X/DAY
     Dates: start: 20170727, end: 20170731
  16. 6-MERCAPTOPURINE MONOHYDRATE [Suspect]
     Active Substance: MERCAPTOPURINE
     Indication: ACUTE LYMPHOCYTIC LEUKAEMIA
     Dosage: 735 MG, 1X/DAY
     Route: 048
     Dates: start: 20170727, end: 20170816
  17. VINCRISTINE SULFATE. [Suspect]
     Active Substance: VINCRISTINE SULFATE
     Dosage: 1.1 MG, 1X/DAY: (D8, D29,D64)
     Route: 042
     Dates: start: 20170803, end: 20170928
  18. DOLIPRANE [Concomitant]
     Active Substance: ACETAMINOPHEN
     Indication: HYPERBILIRUBINAEMIA

REACTIONS (3)
  - Febrile bone marrow aplasia [Recovered/Resolved]
  - Staphylococcus test positive [Recovered/Resolved]
  - Hyperbilirubinaemia [Recovered/Resolved]

NARRATIVE: CASE EVENT DATE: 20170921
